FAERS Safety Report 8501863-0 (Version None)
Quarter: 2012Q3

REPORT INFORMATION
  Report Type: 
  Country: None (occurrence: None)
  Receive Date: 20120711
  Receipt Date: 20120706
  Transmission Date: 20120928
  Serious: Yes (Other)
  Sender: FDA-Public Use
  Company Number: PHHY2012AU057197

PATIENT
  Sex: Male

DRUGS (5)
  1. CLOZARIL [Suspect]
     Dosage: 75 MG, (25MG MANE AND 50MG NOCTE)
  2. CLOZARIL [Suspect]
     Indication: SCHIZOPHRENIA
     Dosage: 12.5 MG, UNK
     Dates: start: 20120628
  3. CLOPIXOL [Concomitant]
     Dosage: 500 MG, FORTNIGHTLY (EVERY TWO WEEKS)
  4. ABILIFY [Concomitant]
     Dosage: 20 MG, MANE
  5. CLOZARIL [Suspect]
     Dosage: 25 MG, QD

REACTIONS (5)
  - HAEMATOCRIT INCREASED [None]
  - TRICUSPID VALVE DISEASE [None]
  - TACHYCARDIA [None]
  - MITRAL VALVE DISEASE [None]
  - HAEMOGLOBIN INCREASED [None]
